FAERS Safety Report 7905543-1 (Version None)
Quarter: 2011Q4

REPORT INFORMATION
  Report Type: 
  Country: None (occurrence: None)
  Receive Date: 20111110
  Receipt Date: 20111031
  Transmission Date: 20120403
  Serious: No
  Sender: FDA-Public Use
  Company Number: US-BIOGENIDEC-2011BI041752

PATIENT
  Age: 53 Year
  Sex: Female

DRUGS (3)
  1. TYSABRI [Suspect]
     Indication: MULTIPLE SCLEROSIS
     Route: 042
     Dates: start: 20111007
  2. DEXAMETHASONE [Concomitant]
     Indication: ACTIVITIES OF DAILY LIVING IMPAIRED
     Route: 048
  3. DEXAMETHASONE [Concomitant]
     Indication: IMPAIRED DRIVING ABILITY
     Route: 048

REACTIONS (3)
  - HEADACHE [None]
  - ASTHENIA [None]
  - FATIGUE [None]
